FAERS Safety Report 5468919-0 (Version None)
Quarter: 2007Q3

REPORT INFORMATION
  Report Type: 
  Country: None (occurrence: None)
  Receive Date: 20070926
  Receipt Date: 20070920
  Transmission Date: 20080115
  Serious: Yes (Hospitalization)
  Sender: FDA-Public Use
  Company Number: DE-MERCK-0709DEU00321

PATIENT
  Age: 75 Year
  Sex: Female

DRUGS (4)
  1. ZETIA [Suspect]
     Route: 048
     Dates: start: 20050101, end: 20070101
  2. ASPIRIN [Concomitant]
     Route: 048
  3. METOPROLOL SUCCINATE [Concomitant]
     Route: 048
  4. ATACAND [Concomitant]
     Route: 048

REACTIONS (6)
  - ASTHENIA [None]
  - BLOOD CREATINE PHOSPHOKINASE INCREASED [None]
  - BLOOD CREATINE PHOSPHOKINASE MB INCREASED [None]
  - MUSCLE SPASMS [None]
  - MYALGIA [None]
  - MYOGLOBIN BLOOD INCREASED [None]
